FAERS Safety Report 19429465 (Version 1)
Quarter: 2021Q2

REPORT INFORMATION
  Report Type: Spontaneous
  Country: US (occurrence: US)
  Receive Date: 20210617
  Receipt Date: 20210617
  Transmission Date: 20210717
  Serious: Yes (Death)
  Sender: FDA-Public Use
  Company Number: US-PFIZER INC-2021648964

PATIENT
  Age: 70 Year

DRUGS (1)
  1. POTASSIUM CHLORIDE. [Suspect]
     Active Substance: POTASSIUM CHLORIDE
     Dosage: 20 MEQ
     Route: 042

REACTIONS (4)
  - Product administration error [Fatal]
  - Cardiac arrest [Fatal]
  - Product preparation error [Fatal]
  - Overdose [Fatal]
